FAERS Safety Report 18937579 (Version 5)
Quarter: 2024Q2

REPORT INFORMATION
  Report Type: Report from Study
  Country: CA (occurrence: None)
  Receive Date: 20210225
  Receipt Date: 20240620
  Transmission Date: 20240716
  Serious: Yes (Death, Hospitalization, Other)
  Sender: FDA-Public Use
  Company Number: CA-PFIZER INC-2021177306

PATIENT
  Age: 35 Year
  Sex: Male

DRUGS (51)
  1. METHOTREXATE [Suspect]
     Active Substance: METHOTREXATE
     Indication: Product used for unknown indication
  2. METHOTREXATE [Suspect]
     Active Substance: METHOTREXATE
  3. COSENTYX [Suspect]
     Active Substance: SECUKINUMAB
     Indication: Ankylosing spondylitis
  4. COSENTYX [Suspect]
     Active Substance: SECUKINUMAB
     Indication: Ankylosing spondylitis
  5. COSENTYX [Suspect]
     Active Substance: SECUKINUMAB
  6. COSENTYX [Suspect]
     Active Substance: SECUKINUMAB
  7. COSENTYX [Suspect]
     Active Substance: SECUKINUMAB
  8. COSENTYX [Suspect]
     Active Substance: SECUKINUMAB
  9. COSENTYX [Suspect]
     Active Substance: SECUKINUMAB
  10. COSENTYX [Suspect]
     Active Substance: SECUKINUMAB
  11. COSENTYX [Suspect]
     Active Substance: SECUKINUMAB
  12. COSENTYX [Suspect]
     Active Substance: SECUKINUMAB
  13. COSENTYX [Suspect]
     Active Substance: SECUKINUMAB
  14. COSENTYX [Suspect]
     Active Substance: SECUKINUMAB
  15. COSENTYX [Suspect]
     Active Substance: SECUKINUMAB
  16. COSENTYX [Suspect]
     Active Substance: SECUKINUMAB
  17. COSENTYX [Suspect]
     Active Substance: SECUKINUMAB
  18. INDOMETHACIN [Suspect]
     Active Substance: INDOMETHACIN
     Indication: Product used for unknown indication
  19. INDOMETHACIN [Suspect]
     Active Substance: INDOMETHACIN
  20. INDOMETHACIN [Suspect]
     Active Substance: INDOMETHACIN
  21. LEFLUNOMIDE [Suspect]
     Active Substance: LEFLUNOMIDE
     Indication: Product used for unknown indication
  22. LEFLUNOMIDE [Suspect]
     Active Substance: LEFLUNOMIDE
  23. CELEBREX [Concomitant]
     Active Substance: CELECOXIB
  24. CELEBREX [Concomitant]
     Active Substance: CELECOXIB
  25. ENBREL [Concomitant]
     Active Substance: BENZYL ALCOHOL\ETANERCEPT
  26. ENBREL [Concomitant]
     Active Substance: BENZYL ALCOHOL\ETANERCEPT
     Dosage: UNK
  27. HUMIRA [Concomitant]
     Active Substance: ADALIMUMAB
  28. HUMIRA [Concomitant]
     Active Substance: ADALIMUMAB
  29. HUMIRA [Concomitant]
     Active Substance: ADALIMUMAB
  30. HUMIRA [Concomitant]
     Active Substance: ADALIMUMAB
  31. IBUPROFEN [Concomitant]
     Active Substance: IBUPROFEN
  32. IBUPROFEN [Concomitant]
     Active Substance: IBUPROFEN
     Dosage: UNK
  33. NAPROXEN [Concomitant]
     Active Substance: NAPROXEN
  34. NAPROXEN [Concomitant]
     Active Substance: NAPROXEN
     Dosage: UNK
  35. PREDNISONE [Concomitant]
     Active Substance: PREDNISONE
  36. PREDNISONE [Concomitant]
     Active Substance: PREDNISONE
  37. QUETIAPINE FUMARATE [Concomitant]
     Active Substance: QUETIAPINE FUMARATE
  38. QUETIAPINE FUMARATE [Concomitant]
     Active Substance: QUETIAPINE FUMARATE
     Dosage: UNK
  39. QUETIAPINE FUMARATE [Concomitant]
     Active Substance: QUETIAPINE FUMARATE
     Dosage: UNK
  40. SULFASALAZINE [Concomitant]
     Active Substance: SULFASALAZINE
  41. SULFASALAZINE [Concomitant]
     Active Substance: SULFASALAZINE
  42. VENLAFAXINE [Concomitant]
     Active Substance: VENLAFAXINE HYDROCHLORIDE
  43. LYRICA [Concomitant]
     Active Substance: PREGABALIN
  44. LYRICA [Concomitant]
     Active Substance: PREGABALIN
  45. DULOXETINE HYDROCHLORIDE [Concomitant]
     Active Substance: DULOXETINE HYDROCHLORIDE
  46. DULOXETINE HYDROCHLORIDE [Concomitant]
     Active Substance: DULOXETINE HYDROCHLORIDE
  47. DULOXETINE HYDROCHLORIDE [Concomitant]
     Active Substance: DULOXETINE HYDROCHLORIDE
  48. VENLAFAXINE HYDROCHLORIDE [Concomitant]
     Active Substance: VENLAFAXINE HYDROCHLORIDE
  49. VENLAFAXINE HYDROCHLORIDE [Concomitant]
     Active Substance: VENLAFAXINE HYDROCHLORIDE
  50. VENLAFAXINE HYDROCHLORIDE [Concomitant]
     Active Substance: VENLAFAXINE HYDROCHLORIDE
  51. DULOXETINE HYDROCHLORIDE [Concomitant]
     Active Substance: DULOXETINE HYDROCHLORIDE

REACTIONS (11)
  - Death [Fatal]
  - Seizure [Unknown]
  - Pain [Unknown]
  - Arthralgia [Unknown]
  - Cough [Unknown]
  - Influenza [Unknown]
  - Nasopharyngitis [Unknown]
  - Ankylosing spondylitis [Unknown]
  - Colitis ulcerative [Unknown]
  - Fibromyalgia [Unknown]
  - Chronic idiopathic pain syndrome [Unknown]
